FAERS Safety Report 6067077-1 (Version None)
Quarter: 2009Q1

REPORT INFORMATION
  Report Type: 
  Country: None (occurrence: None)
  Receive Date: 20090205
  Receipt Date: 20090128
  Transmission Date: 20090719
  Serious: Yes (Death, Hospitalization)
  Sender: FDA-Public Use
  Company Number: AU-MERCK-0902USA00150

PATIENT
  Age: 41 Year
  Sex: Female

DRUGS (4)
  1. ISENTRESS [Suspect]
     Indication: HIV INFECTION
     Route: 048
  2. LAMIVUDINE [Concomitant]
     Indication: HIV INFECTION
     Route: 048
  3. RITONAVIR [Concomitant]
     Route: 048
  4. ATAZANAVIR [Concomitant]
     Route: 048

REACTIONS (11)
  - BLOOD GLUCOSE ABNORMAL [None]
  - CONFUSIONAL STATE [None]
  - HEADACHE [None]
  - HERPES ZOSTER [None]
  - HYPOPHONESIS [None]
  - MYELITIS [None]
  - NECK PAIN [None]
  - PROTEIN TOTAL INCREASED [None]
  - QUADRIPARESIS [None]
  - SOMNOLENCE [None]
  - VASCULITIS NECROTISING [None]
